FAERS Safety Report 10449818 (Version 1)
Quarter: 2014Q3

REPORT INFORMATION
  Report Type: Spontaneous
  Country: US (occurrence: None)
  Receive Date: 20140911
  Receipt Date: 20140911
  Transmission Date: 20150326
  Serious: No
  Sender: FDA-Public Use
  Company Number: None

PATIENT
  Age: 60 Year
  Sex: Female

DRUGS (1)
  1. PROLIA [Suspect]
     Active Substance: DENOSUMAB
     Indication: OSTEOPOROSIS
     Dosage: 60MG, Q6M, SQ
     Dates: start: 20140327

REACTIONS (4)
  - Diarrhoea [None]
  - Skin exfoliation [None]
  - Dry skin [None]
  - Otorrhoea [None]

NARRATIVE: CASE EVENT DATE: 20140327
